FAERS Safety Report 6419060-1 (Version None)
Quarter: 2009Q4

REPORT INFORMATION
  Report Type: 
  Country: None (occurrence: None)
  Receive Date: 20091027
  Receipt Date: 20091014
  Transmission Date: 20100525
  Serious: Yes (Hospitalization, Disabling, Other)
  Sender: FDA-Public Use
  Company Number: 2009AP004186

PATIENT
  Age: 61 Year
  Sex: Male

DRUGS (11)
  1. CITALOPRAM HYDROBROMIDE (CITALOPRAM HYDROBROMIDE) [Suspect]
     Indication: DEPRESSION
     Dosage: 20 MG; QD
     Dates: start: 20061003, end: 20090701
  2. ASPIRIN [Concomitant]
  3. ATORVASTATIN CALCIUM [Concomitant]
  4. CHLORPHENIRAMINE MALEATE [Concomitant]
  5. DIAZEPAM [Concomitant]
  6. LOSARTAN (LOSARTAN) [Concomitant]
  7. ZOPICLONE (ZOPICLONE) [Concomitant]
  8. FLUOXETINE HCL [Concomitant]
  9. PAROXETINE HCL [Concomitant]
  10. SERTRALINE HCL [Concomitant]
  11. VENLAFAXINE HCL [Concomitant]

REACTIONS (5)
  - DEPRESSED MOOD [None]
  - DISTURBANCE IN ATTENTION [None]
  - ERECTILE DYSFUNCTION [None]
  - SLEEP DISORDER [None]
  - SUICIDE ATTEMPT [None]
